FAERS Safety Report 6424449-0 (Version None)
Quarter: 2009Q4

REPORT INFORMATION
  Report Type: 
  Country: None (occurrence: None)
  Receive Date: 20091029
  Receipt Date: 20091015
  Transmission Date: 20100525
  Serious: Yes (Hospitalization, Other)
  Sender: FDA-Public Use
  Company Number: 2009AL006733

PATIENT
  Age: 28 Year
  Sex: Female

DRUGS (4)
  1. IBUPROFEN [Suspect]
  2. PAROXETINE HCL [Concomitant]
  3. SERTRALINE HCL [Concomitant]
  4. SULPIRIDE [Concomitant]

REACTIONS (9)
  - DEPRESSION [None]
  - DRUG ABUSE [None]
  - DRY MOUTH [None]
  - EMOTIONAL DISTRESS [None]
  - OVERDOSE [None]
  - PARTNER STRESS [None]
  - PRURITUS [None]
  - SELF-INJURIOUS IDEATION [None]
  - SUICIDAL IDEATION [None]
